FAERS Safety Report 19358199 (Version 1)
Quarter: 2021Q2

REPORT INFORMATION
  Report Type: Report from Study
  Country: KR (occurrence: KR)
  Receive Date: 20210602
  Receipt Date: 20210602
  Transmission Date: 20210717
  Serious: Yes (Other)
  Sender: FDA-Public Use
  Company Number: KR-AMGEN INC.-KORCT2021083760

PATIENT
  Age: 58 Year
  Sex: Male

DRUGS (1)
  1. FILGRASTIM [Suspect]
     Active Substance: FILGRASTIM
     Indication: PRODUCT USED FOR UNKNOWN INDICATION
     Dosage: UNK, QD (1 UNK)
     Route: 065
     Dates: start: 20180716, end: 20180718

REACTIONS (15)
  - Neutrophil count decreased [Recovered/Resolved]
  - Cough [Recovered/Resolved]
  - Vomiting [Recovered/Resolved]
  - Nausea [Recovered/Resolved]
  - Delirium [Not Recovered/Not Resolved]
  - Anaemia [Recovering/Resolving]
  - Psychotic disorder due to a general medical condition [Recovering/Resolving]
  - Generalised oedema [Not Recovered/Not Resolved]
  - Haemoptysis [Recovered/Resolved]
  - Febrile neutropenia [Recovered/Resolved]
  - White blood cell count decreased [Recovered/Resolved]
  - Hypoalbuminaemia [Recovering/Resolving]
  - Decreased appetite [Recovering/Resolving]
  - Asthenia [Not Recovered/Not Resolved]
  - Oedema [Recovered/Resolved]

NARRATIVE: CASE EVENT DATE: 20180807
